FAERS Safety Report 9153125 (Version 2)
Quarter: 2013Q1

REPORT INFORMATION
  Report Type: Spontaneous
  Country: CA (occurrence: CA)
  Receive Date: 20130311
  Receipt Date: 20130318
  Transmission Date: 20140127
  Serious: No
  Sender: FDA-Public Use
  Company Number: CA-AMGEN-CANSP2013016013

PATIENT
  Age: 62 Year
  Sex: Male

DRUGS (9)
  1. ENBREL [Suspect]
     Indication: RHEUMATOID ARTHRITIS
     Dosage: 50 MG, UNK
     Route: 058
     Dates: start: 20120420
  2. LEFLUNOMIDE [Suspect]
     Dosage: 20 UNK, UNK
     Route: 048
     Dates: end: 201212
  3. HYDROXYCHLOROQUINE [Suspect]
     Dosage: 400 UNK, UNK
     Route: 048
     Dates: end: 201212
  4. ACTEMRA [Concomitant]
     Dosage: UNK
  5. ATORVASTATIN [Concomitant]
     Dosage: 10 MG, QD
  6. FOLIC ACID [Concomitant]
     Dosage: 5 MG, QD
  7. PANTOPRAZOLE [Concomitant]
     Dosage: 40 MG, QD
  8. CALCIUM + VITAMIN D                /01483701/ [Concomitant]
     Dosage: UNK
  9. ELTROXIN [Concomitant]
     Dosage: UNK

REACTIONS (3)
  - Neuropathy peripheral [Not Recovered/Not Resolved]
  - Rash pruritic [Recovered/Resolved]
  - Pruritus [Not Recovered/Not Resolved]
